FAERS Safety Report 9371621 (Version 1)
Quarter: 2013Q2

REPORT INFORMATION
  Report Type: Spontaneous
  Country: BD (occurrence: BD)
  Receive Date: 20130627
  Receipt Date: 20130627
  Transmission Date: 20140414
  Serious: Yes (Death, Hospitalization)
  Sender: FDA-Public Use
  Company Number: PHHY2013BD065717

PATIENT
  Sex: Male

DRUGS (1)
  1. VOLTALIN [Suspect]
     Indication: PAIN
     Dosage: UNK UKN, UNK
     Dates: start: 20130619

REACTIONS (1)
  - Road traffic accident [Fatal]
